FAERS Safety Report 20828984 (Version 9)
Quarter: 2024Q1

REPORT INFORMATION
  Report Type: Report from Study
  Country: BR (occurrence: BR)
  Receive Date: 20220513
  Receipt Date: 20240226
  Transmission Date: 20240410
  Serious: Yes (Life-Threatening, Hospitalization, Other)
  Sender: FDA-Public Use
  Company Number: BR-TAKEDA-2022TUS006040

PATIENT
  Age: 61 Year
  Sex: Female
  Weight: 52 kg

DRUGS (20)
  1. HUMAN IMMUNOGLOBULIN G\HYALURONIDASE RECOMBINANT HUMAN [Suspect]
     Active Substance: HUMAN IMMUNOGLOBULIN G\HYALURONIDASE (HUMAN RECOMBINANT)
     Indication: Primary immunodeficiency syndrome
     Dosage: 300 MILLILITER
     Route: 058
     Dates: start: 202103
  2. HUMAN IMMUNOGLOBULIN G\HYALURONIDASE RECOMBINANT HUMAN [Suspect]
     Active Substance: HUMAN IMMUNOGLOBULIN G\HYALURONIDASE (HUMAN RECOMBINANT)
     Indication: Immunodeficiency
     Dosage: 30 MILLIGRAM
     Route: 058
  3. HUMAN IMMUNOGLOBULIN G\HYALURONIDASE RECOMBINANT HUMAN [Suspect]
     Active Substance: HUMAN IMMUNOGLOBULIN G\HYALURONIDASE (HUMAN RECOMBINANT)
     Dosage: UNK, UNK, Q4WEEKS
     Route: 065
  4. HUMAN IMMUNOGLOBULIN G\HYALURONIDASE RECOMBINANT HUMAN [Suspect]
     Active Substance: HUMAN IMMUNOGLOBULIN G\HYALURONIDASE (HUMAN RECOMBINANT)
     Dosage: 30 GRAM, Q4WEEKS
     Route: 058
  5. HUMAN IMMUNOGLOBULIN G\HYALURONIDASE RECOMBINANT HUMAN [Suspect]
     Active Substance: HUMAN IMMUNOGLOBULIN G\HYALURONIDASE (HUMAN RECOMBINANT)
     Dosage: 40 GRAM, Q4WEEKS
     Route: 058
     Dates: start: 20210317
  6. HUMAN IMMUNOGLOBULIN G\HYALURONIDASE RECOMBINANT HUMAN [Suspect]
     Active Substance: HUMAN IMMUNOGLOBULIN G\HYALURONIDASE (HUMAN RECOMBINANT)
     Dosage: UNK
     Route: 058
     Dates: start: 202208
  7. HUMAN IMMUNOGLOBULIN G\HYALURONIDASE RECOMBINANT HUMAN [Suspect]
     Active Substance: HUMAN IMMUNOGLOBULIN G\HYALURONIDASE (HUMAN RECOMBINANT)
     Dosage: 400 MILLIGRAM, Q4WEEKS
     Route: 058
  8. NIMESULIDE [Suspect]
     Active Substance: NIMESULIDE
     Indication: Viral infection
     Dosage: UNK
     Route: 065
  9. PREGABALIN [Concomitant]
     Active Substance: PREGABALIN
     Indication: Fibromyalgia
     Dosage: 75 MILLIGRAM
     Route: 065
  10. PREGABALIN [Concomitant]
     Active Substance: PREGABALIN
     Indication: Osteoarthritis
  11. AMITRIPTYLINE [Concomitant]
     Active Substance: AMITRIPTYLINE
     Indication: Fibromyalgia
     Dosage: 25 MILLIGRAM
     Route: 065
  12. AMITRIPTYLINE [Concomitant]
     Active Substance: AMITRIPTYLINE
     Indication: Osteoarthritis
  13. ALPRAZOLAM [Concomitant]
     Active Substance: ALPRAZOLAM
     Indication: Fibromyalgia
     Dosage: 1 MILLIGRAM
     Route: 065
  14. ALPRAZOLAM [Concomitant]
     Active Substance: ALPRAZOLAM
     Indication: Osteoarthritis
  15. BIVOLET [Concomitant]
     Indication: Blood pressure abnormal
     Dosage: 5 MILLIGRAM
     Route: 065
  16. CORDAREX [Concomitant]
     Active Substance: AMIODARONE
     Indication: Blood pressure abnormal
     Dosage: 2.5 MILLIGRAM
     Route: 065
  17. Alenia [Concomitant]
     Indication: Asthma
     Dosage: UNK UNK, Q12H
     Route: 065
  18. Alenia [Concomitant]
     Indication: Dyspnoea
  19. DYMISTA [Concomitant]
     Active Substance: AZELASTINE HYDROCHLORIDE\FLUTICASONE PROPIONATE
     Indication: Bronchiectasis
     Dosage: UNK
     Route: 065
  20. VITAMIN D3 [Concomitant]
     Active Substance: CHOLECALCIFEROL
     Dosage: UNK
     Route: 065

REACTIONS (43)
  - Sepsis [Unknown]
  - Infection [Recovered/Resolved]
  - Pneumonia [Unknown]
  - Spinal fracture [Unknown]
  - Bronchiolitis [Unknown]
  - Arthritis [Recovered/Resolved]
  - Fibromyalgia [Recovered/Resolved]
  - Blood pressure increased [Recovered/Resolved]
  - Malaise [Recovered/Resolved]
  - Pyrexia [Recovered/Resolved]
  - Speech disorder [Unknown]
  - Abdominal discomfort [Unknown]
  - Sneezing [Unknown]
  - Pain [Unknown]
  - Frequent bowel movements [Unknown]
  - Therapeutic product effect delayed [Unknown]
  - Application site haematoma [Unknown]
  - Illness anxiety disorder [Unknown]
  - Viral infection [Recovering/Resolving]
  - Sinusitis [Recovering/Resolving]
  - Influenza [Unknown]
  - Obstruction [Unknown]
  - Weight increased [Unknown]
  - Wheezing [Unknown]
  - Osteopenia [Unknown]
  - Sensitivity to weather change [Unknown]
  - Bladder discomfort [Not Recovered/Not Resolved]
  - Defaecation urgency [Unknown]
  - Micturition urgency [Unknown]
  - Cough [Unknown]
  - Migraine [Unknown]
  - Influenza like illness [Unknown]
  - Abdominal pain [Unknown]
  - Dyspnoea [Unknown]
  - Fatigue [Unknown]
  - Hypersensitivity [Unknown]
  - Headache [Not Recovered/Not Resolved]
  - Abdominal distension [Unknown]
  - Oedema [Unknown]
  - Swelling [Not Recovered/Not Resolved]
  - Product use issue [Unknown]
  - Inappropriate schedule of product administration [Recovered/Resolved]
  - Product prescribing issue [Unknown]

NARRATIVE: CASE EVENT DATE: 20220301
